FAERS Safety Report 4654034-2 (Version None)
Quarter: 2005Q2

REPORT INFORMATION
  Report Type: 
  Country: None (occurrence: None)
  Receive Date: 20050504
  Receipt Date: 20050422
  Transmission Date: 20051028
  Serious: Yes (Other)
  Sender: FDA-Public Use
  Company Number: CA-2004-034977

PATIENT
  Age: 39 Year
  Sex: Female

DRUGS (10)
  1. BETASERON [Suspect]
     Indication: RELAPSING-REMITTING MULTIPLE SCLEROSIS
     Dosage: SEE IMAGE
     Route: 058
     Dates: start: 20040201, end: 20041013
  2. BETASERON [Suspect]
     Indication: RELAPSING-REMITTING MULTIPLE SCLEROSIS
     Dosage: SEE IMAGE
     Route: 058
     Dates: start: 20041206, end: 20041228
  3. AMANTADINE HCL [Suspect]
  4. PANTOLOC ^SOLVAY^ (PANTOPRAZOLE SODIUM) [Concomitant]
  5. DITROPAN (0XYBUTYNIN) [Concomitant]
  6. EFFEXOR /CAN/VENLAFAXINE HYDROCHLORIDE) [Concomitant]
  7. ASPIRIN ^BAYER^ (BABY) (ACETYLSALICYLIC ACID) [Concomitant]
  8. SYNTHROID [Concomitant]
  9. NIFEDIPINE [Concomitant]
  10. BACLOFEN [Concomitant]

REACTIONS (13)
  - ARTERIAL DISORDER [None]
  - ARTERIAL OCCLUSIVE DISEASE [None]
  - BLOOD CHOLESTEROL INCREASED [None]
  - CONTUSION [None]
  - HYPOAESTHESIA [None]
  - OEDEMA PERIPHERAL [None]
  - PAIN IN EXTREMITY [None]
  - PERIPHERAL COLDNESS [None]
  - PERIPHERAL VASCULAR DISORDER [None]
  - PULSE ABSENT [None]
  - RASH MACULAR [None]
  - SPLINTER HAEMORRHAGES [None]
  - VASCULITIS [None]
